FAERS Safety Report 26012462 (Version 4)
Quarter: 2025Q4

REPORT INFORMATION
  Report Type: Spontaneous
  Country: US (occurrence: US)
  Receive Date: 20251107
  Receipt Date: 20251203
  Transmission Date: 20260117
  Serious: No
  Sender: AMGEN
  Company Number: US-AMGEN-USASP2025220886

PATIENT
  Age: 66 Year
  Sex: Female

DRUGS (2)
  1. ENBREL [Suspect]
     Active Substance: ETANERCEPT
     Indication: Psoriatic arthropathy
     Dosage: 50 MILLIGRAM, QWK
     Route: 058
  2. ENBREL [Suspect]
     Active Substance: ETANERCEPT
     Indication: Systemic lupus erythematosus

REACTIONS (5)
  - Device difficult to use [Unknown]
  - Balance disorder [Unknown]
  - Fall [Unknown]
  - Drug dose omission by device [Unknown]
  - Nasopharyngitis [Recovered/Resolved]

NARRATIVE: CASE EVENT DATE: 20251106
